FAERS Safety Report 17898262 (Version 1)
Quarter: 2020Q2

REPORT INFORMATION
  Report Type: Spontaneous
  Country: US (occurrence: US)
  Receive Date: 20200615
  Receipt Date: 20200615
  Transmission Date: 20200714
  Serious: No
  Sender: FDA-Public Use
  Company Number: US-PERRIGO-20US006989

PATIENT
  Age: 60 Year
  Sex: Female
  Weight: 81.63 kg

DRUGS (1)
  1. ALBUTEROL SULFATE. [Suspect]
     Active Substance: ALBUTEROL SULFATE
     Indication: ASTHMA
     Dosage: 180 MCG, QID
     Route: 055
     Dates: start: 202004

REACTIONS (1)
  - Retching [Not Recovered/Not Resolved]

NARRATIVE: CASE EVENT DATE: 202004
